FAERS Safety Report 23778044 (Version 1)
Quarter: 2024Q2

REPORT INFORMATION
  Report Type: Spontaneous
  Country: US (occurrence: None)
  Receive Date: 20240423
  Receipt Date: 20240423
  Transmission Date: 20240716
  Serious: No
  Sender: FDA-Public Use
  Company Number: None

PATIENT
  Age: 71 Year
  Sex: Female
  Weight: 51.75 kg

DRUGS (8)
  1. INCLISIRAN [Suspect]
     Active Substance: INCLISIRAN
     Indication: Blood cholesterol increased
     Dosage: 1 INJECTION EVERY 6 MONTHS SUBCUTANEOUS?
     Route: 058
     Dates: start: 20240410
  2. ARFORMOTEROL [Concomitant]
  3. BUDESONIDE [Concomitant]
     Active Substance: BUDESONIDE
  4. LEVALBUTEROL [Concomitant]
     Active Substance: LEVALBUTEROL
  5. PANTOPRAZOLE [Concomitant]
  6. VITAMIN B COMPLEX [Concomitant]
     Active Substance: CYANOCOBALAMIN\DEXPANTHENOL\NIACINAMIDE\PYRIDOXINE HYDROCHLORIDE\RIBOFLAVIN 5^-PHOSPHATE SODIUM\THIA
  7. VITAMIN D3 [Concomitant]
     Active Substance: CHOLECALCIFEROL
  8. CALCIUM [Concomitant]
     Active Substance: CALCIUM

REACTIONS (7)
  - Vomiting [None]
  - Headache [None]
  - Nausea [None]
  - Herpes virus infection [None]
  - Arthralgia [None]
  - Myalgia [None]
  - Fatigue [None]

NARRATIVE: CASE EVENT DATE: 20240410
